FAERS Safety Report 9524648 (Version 1)
Quarter: 2013Q3

REPORT INFORMATION
  Report Type: Spontaneous
  Country: FR (occurrence: FR)
  Receive Date: 20130916
  Receipt Date: 20130916
  Transmission Date: 20140515
  Serious: Yes (Hospitalization)
  Sender: FDA-Public Use
  Company Number: FR-PFIZER INC-2013262739

PATIENT
  Age: 80 Year
  Sex: Female

DRUGS (16)
  1. ORELOX [Suspect]
     Indication: ACUTE SINUSITIS
     Dosage: UNK
     Route: 048
     Dates: start: 20130508, end: 20130516
  2. AMOXICILLIN TRIHYDRATE [Suspect]
     Dosage: UNK
     Route: 048
     Dates: start: 20130409, end: 20130416
  3. BRONCHOKOD [Suspect]
     Indication: BRONCHITIS
     Dosage: UNK
     Route: 048
     Dates: start: 20130409, end: 20130416
  4. VENTOLINE [Suspect]
     Indication: ACUTE SINUSITIS
     Dosage: 1 DF, 2X/DAY
     Route: 055
     Dates: start: 20130508, end: 20130516
  5. BACTRIM FORTE [Suspect]
     Indication: CYSTITIS
     Dosage: 1 DF, 2X/DAY
     Route: 048
     Dates: start: 20130511, end: 20130521
  6. SERESTA [Concomitant]
  7. DAFLON [Concomitant]
  8. BISOPROLOL HEMIFUMARATE/HYDROCHLOROTHIAZIDE [Concomitant]
  9. LEVOTHYROX [Concomitant]
  10. PREVISCAN [Concomitant]
  11. KALEORID [Concomitant]
  12. HEMIGOXINE NATIVELLE [Concomitant]
  13. OMEPRAZOLE [Concomitant]
  14. OROCAL D3 [Concomitant]
  15. BURINEX [Concomitant]
  16. DOLIPRANE [Concomitant]

REACTIONS (7)
  - Oral candidiasis [Unknown]
  - Acute generalised exanthematous pustulosis [Recovering/Resolving]
  - Rash maculo-papular [Recovering/Resolving]
  - Rash pustular [Recovering/Resolving]
  - Erythema [Recovering/Resolving]
  - Pruritus [Recovering/Resolving]
  - Granulocytosis [Recovering/Resolving]
